FAERS Safety Report 4339108-8 (Version None)
Quarter: 2004Q2

REPORT INFORMATION
  Report Type: 
  Country: None (occurrence: None)
  Receive Date: 20040412
  Receipt Date: 20040330
  Transmission Date: 20050107
  Serious: Yes (Other)
  Sender: FDA-Public Use
  Company Number: 2004022133

PATIENT
  Age: 72 Year
  Sex: Female
  Weight: 56.246 kg

DRUGS (5)
  1. LIPITOR [Suspect]
     Indication: BLOOD CHOLESTEROL INCREASED
     Dosage: 20 MG (DAILY), ORAL
     Route: 048
  2. ANTIBIOTICS (ANTIBIOTICS) [Suspect]
     Indication: PARAPROTEINAEMIA
     Dosage: INTRAVENOUS
     Route: 042
  3. RALOXIFENE HYDROCHLORIDE (RALOXIFENE HYDROCHLORIDE) [Concomitant]
  4. ATENOLOL [Concomitant]
  5. VITAMINS (VITAMINS) [Concomitant]

REACTIONS (7)
  - ALANINE AMINOTRANSFERASE INCREASED [None]
  - ASPARTATE AMINOTRANSFERASE INCREASED [None]
  - BLOOD CHOLESTEROL INCREASED [None]
  - BODY TEMPERATURE INCREASED [None]
  - FATIGUE [None]
  - PARAPROTEINAEMIA [None]
  - WEIGHT DECREASED [None]
